FAERS Safety Report 23083377 (Version 2)
Quarter: 2024Q2

REPORT INFORMATION
  Report Type: Spontaneous
  Country: CA (occurrence: CA)
  Receive Date: 20231019
  Receipt Date: 20240613
  Transmission Date: 20240715
  Serious: Yes (Other)
  Sender: FDA-Public Use
  Company Number: None

PATIENT
  Sex: Female

DRUGS (14)
  1. LEVOFLOXACIN [Suspect]
     Active Substance: LEVOFLOXACIN
     Indication: Pneumonia
     Dosage: UNK,UNK
     Route: 065
     Dates: start: 2016
  2. AMOXICILLIN\CLAVULANIC ACID [Suspect]
     Active Substance: AMOXICILLIN\CLAVULANIC ACID
     Indication: Pneumonia
     Dosage: UNK,UNK
     Route: 065
     Dates: start: 2018
  3. CEFADROXIL [Suspect]
     Active Substance: CEFADROXIL
     Indication: Cellulitis
     Dosage: UNK,UNK
     Route: 065
     Dates: start: 2015
  4. MOXIFLOXACIN [Suspect]
     Active Substance: MOXIFLOXACIN
     Indication: Pneumonia
     Dosage: UNK,UNK
     Route: 065
     Dates: start: 2017
  5. DURVALUMAB [Concomitant]
     Active Substance: DURVALUMAB
     Indication: Metastases to lymph nodes
     Dosage: UNK,UNK
     Route: 065
     Dates: start: 2015, end: 2016
  6. DURVALUMAB [Concomitant]
     Active Substance: DURVALUMAB
     Indication: Malignant melanoma
     Dosage: UNK,UNK
     Route: 065
     Dates: start: 2016, end: 2017
  7. NIVOLUMAB [Concomitant]
     Active Substance: NIVOLUMAB
     Indication: Metastases to lymph nodes
     Dosage: UNK,UNK
     Route: 065
     Dates: start: 2018
  8. NIVOLUMAB [Concomitant]
     Active Substance: NIVOLUMAB
     Indication: Disease progression
  9. NIVOLUMAB [Concomitant]
     Active Substance: NIVOLUMAB
     Indication: Malignant melanoma
  10. IPILIMUMAB [Concomitant]
     Active Substance: IPILIMUMAB
     Indication: Disease progression
     Dosage: UNK,UNK
     Route: 065
     Dates: start: 201812, end: 2019
  11. IPILIMUMAB [Concomitant]
     Active Substance: IPILIMUMAB
     Indication: Malignant melanoma
  12. IPILIMUMAB [Concomitant]
     Active Substance: IPILIMUMAB
     Indication: Metastases to lymph nodes
  13. TRAMETINIB [Concomitant]
     Active Substance: TRAMETINIB
     Indication: Metastases to lymph nodes
     Dosage: UNK,UNK
     Route: 065
     Dates: start: 2015, end: 2016
  14. TRAMETINIB [Concomitant]
     Active Substance: TRAMETINIB
     Indication: Malignant melanoma
     Dosage: UNK,UNK
     Route: 065
     Dates: start: 2016, end: 2017

REACTIONS (3)
  - Gastrointestinal disorder [Recovering/Resolving]
  - Neoplasm progression [Recovering/Resolving]
  - Metastatic malignant melanoma [Recovering/Resolving]

NARRATIVE: CASE EVENT DATE: 20210701
